FAERS Safety Report 8964389 (Version 1)
Quarter: 2012Q4

REPORT INFORMATION
  Report Type: 
  Country: CO (occurrence: CO)
  Receive Date: 20121214
  Receipt Date: 20121214
  Transmission Date: 20130627
  Serious: Yes (Other)
  Sender: FDA-Public Use
  Company Number: CO-PFIZER INC-2012313209

PATIENT
  Age: 17 Year
  Sex: Male

DRUGS (5)
  1. GENOTROPIN [Suspect]
     Indication: GROWTH FAILURE
     Dosage: 1.8 mg, 1x/day
     Route: 058
     Dates: start: 1999, end: 20121115
  2. GENOTROPIN [Suspect]
     Indication: THYROID DISORDER
  3. LEVOTHYROXINE [Concomitant]
     Indication: HYPOTHYROIDISM
     Dosage: 50 mg, 1x/day
     Route: 048
     Dates: start: 1995
  4. LEVOTHYROXINE [Concomitant]
     Dosage: 100 mg, 1x/day
     Route: 048
     Dates: end: 201206
  5. LEVOTHYROXINE [Concomitant]
     Dosage: 50 mg, 1x/day
     Route: 048
     Dates: start: 201206

REACTIONS (2)
  - Syncope [Recovered/Resolved]
  - Drug ineffective [Not Recovered/Not Resolved]
